FAERS Safety Report 19039336 (Version 1)
Quarter: 2021Q1

REPORT INFORMATION
  Report Type: Report from Study
  Country: US (occurrence: US)
  Receive Date: 20210322
  Receipt Date: 20210322
  Transmission Date: 20210420
  Serious: Yes (Hospitalization, Other)
  Sender: FDA-Public Use
  Company Number: US-BAYER-2021-089859

PATIENT
  Age: 52 Year
  Sex: Male

DRUGS (1)
  1. STIVARGA [Suspect]
     Active Substance: REGORAFENIB
     Indication: COLORECTAL CANCER
     Dosage: 160 MG DAILY FOR 21 DAYS ON AND 7 DAYS OF
     Route: 048
     Dates: start: 20210216

REACTIONS (8)
  - Pleural effusion [Unknown]
  - Lung disorder [Unknown]
  - Product dose omission issue [None]
  - Pain [Unknown]
  - Asthenia [Not Recovered/Not Resolved]
  - Loss of personal independence in daily activities [Not Recovered/Not Resolved]
  - Dyspnoea [Unknown]
  - Adverse drug reaction [None]
